FAERS Safety Report 5132463-0 (Version None)
Quarter: 2006Q4

REPORT INFORMATION
  Report Type: 
  Country: None (occurrence: None)
  Receive Date: 20061023
  Receipt Date: 20061019
  Transmission Date: 20070319
  Serious: Yes (Hospitalization)
  Sender: FDA-Public Use
  Company Number: US-BRISTOL-MYERS SQUIBB COMPANY-13547088

PATIENT
  Age: 30 Year
  Sex: Female
  Weight: 63 kg

DRUGS (1)
  1. KENALOG [Suspect]
     Indication: MYALGIA
     Dosage: PT RECEIVED 2 INJECTIONS IN UPPER BACK AREA-7/25/06 AND 8/15/06.
     Dates: start: 20060725, end: 20060815

REACTIONS (8)
  - BODY TEMPERATURE INCREASED [None]
  - DIZZINESS [None]
  - FLUSHING [None]
  - GASTROOESOPHAGEAL REFLUX DISEASE [None]
  - INJECTION SITE ATROPHY [None]
  - NAUSEA [None]
  - VISION BLURRED [None]
  - WEIGHT DECREASED [None]
